FAERS Safety Report 8066162-2 (Version None)
Quarter: 2012Q1

REPORT INFORMATION
  Report Type: 
  Country: None (occurrence: None)
  Receive Date: 20120124
  Receipt Date: 20111129
  Transmission Date: 20120608
  Serious: No
  Sender: FDA-Public Use
  Company Number: US-BRISTOL-MYERS SQUIBB COMPANY-16258162

PATIENT
  Age: 6 Year
  Sex: Female

DRUGS (3)
  1. METHYLPHENIDATE [Concomitant]
     Route: 048
  2. ABILIFY [Suspect]
     Dosage: 1DF=1/2 ML AT BEDTIME( FOR 2 WEEKS) AND TITRATED TO 1ML
     Route: 048
     Dates: start: 20110921
  3. DAYTRANA [Concomitant]
     Route: 048

REACTIONS (1)
  - INCORRECT STORAGE OF DRUG [None]
